FAERS Safety Report 9044634 (Version 1)
Quarter: 2013Q1

REPORT INFORMATION
  Report Type: Spontaneous
  Country: US (occurrence: US)
  Receive Date: 20130130
  Receipt Date: 20130130
  Transmission Date: 20140127
  Serious: No
  Sender: FDA-Public Use
  Company Number: US-BAYER-2013-009440

PATIENT
  Age: 85 Year
  Sex: Female
  Weight: 86.17 kg

DRUGS (3)
  1. ALEVE CAPLET/TABLET,MIDOL EXTENDED RELIEF CAPLET [Suspect]
     Indication: SLEEP DISORDER THERAPY
     Dosage: 2 DF, QD
     Route: 048
     Dates: start: 2012
  2. LIPITOR [Concomitant]
  3. NEXIUM [Concomitant]

REACTIONS (1)
  - Off label use [None]
